FAERS Safety Report 17875901 (Version 2)
Quarter: 2020Q2

REPORT INFORMATION
  Report Type: Report from Study
  Country: ES (occurrence: ES)
  Receive Date: 20200609
  Receipt Date: 20200612
  Transmission Date: 20200714
  Serious: Yes (Hospitalization)
  Sender: FDA-Public Use
  Company Number: ES-ROCHE-2616155

PATIENT
  Age: 71 Year
  Sex: Male
  Weight: 88.5 kg

DRUGS (22)
  1. ATORVASTATIN [Concomitant]
     Active Substance: ATORVASTATIN
     Indication: DYSLIPIDAEMIA
     Route: 048
  2. TELMISARTAN. [Concomitant]
     Active Substance: TELMISARTAN
     Indication: HYPERTENSION
     Route: 048
  3. TAMSULOSIN [Concomitant]
     Active Substance: TAMSULOSIN
     Dosage: PROPHYLAXIS URINARY TRACT SYMPTOMS
     Route: 048
  4. ISOSORBIDE MONONITRATE. [Concomitant]
     Active Substance: ISOSORBIDE MONONITRATE
     Dosage: PROPHYLAXIS ACUTE MYOCARDIAL INFARCTION
     Route: 048
  5. PARACETAMOL [Concomitant]
     Active Substance: ACETAMINOPHEN
     Dosage: PROPHYLAXIS PAIN
     Route: 048
  6. TOCILIZUMAB. [Suspect]
     Active Substance: TOCILIZUMAB
     Indication: TRANSITIONAL CELL CARCINOMA
     Route: 042
     Dates: start: 20200120
  7. ENFORTUMAB VEDOTIN [Suspect]
     Active Substance: ENFORTUMAB VEDOTIN
     Indication: TRANSITIONAL CELL CARCINOMA
     Dosage: MOST RECENT DOSE: 20/MAY/2020
     Route: 042
     Dates: start: 20200422
  8. CYANOCOBALAMIN. [Concomitant]
     Active Substance: CYANOCOBALAMIN
     Indication: ANAEMIA
     Route: 058
  9. HIDROFEROL [Concomitant]
     Active Substance: CALCIFEDIOL
     Dosage: PROPHYLAXIS VITAMIN D
     Route: 048
  10. ALOPURINOL [Concomitant]
     Active Substance: ALLOPURINOL
     Dosage: PROPHYLAXIS HYPERURICEMIA
     Route: 048
  11. DUTASTERIDE. [Concomitant]
     Active Substance: DUTASTERIDE
     Dosage: PROPHYLAXIS URINARY TRACT SYMPTOMS
     Route: 048
  12. OMEPRAZOLE. [Concomitant]
     Active Substance: OMEPRAZOLE
     Dosage: PROPHYLAXIS GASTRIC SYMPTOMS
     Route: 048
     Dates: start: 20200115
  13. METFORMIN [Concomitant]
     Active Substance: METFORMIN HYDROCHLORIDE
     Indication: DIABETES MELLITUS
     Route: 048
  14. CALCIUM POLYSTYRENE SULFONATE [Concomitant]
     Active Substance: CALCIUM POLYSTYRENE SULFONATE
     Dosage: PROPHYLAXIS HYPERKALEMIA
     Route: 048
  15. CARVEDILOL. [Concomitant]
     Active Substance: CARVEDILOL
     Indication: HYPERTENSION
     Route: 065
  16. INSULIN GLARGINE [Concomitant]
     Active Substance: INSULIN GLARGINE
     Indication: DIABETES MELLITUS
     Dosage: 26 U
     Route: 058
  17. HYDROCHLOROTHIAZIDE. [Concomitant]
     Active Substance: HYDROCHLOROTHIAZIDE
     Indication: HYPERTENSION
     Route: 048
  18. SOLINITRINA [Concomitant]
     Dosage: PROPHYLAXIS ACUTE MYOCARDIAL INFARCTION
     Route: 065
  19. CLOPIDOGREL [Concomitant]
     Active Substance: CLOPIDOGREL BISULFATE
     Dosage: PROPHYLAXIS CLOT FORMATION
     Route: 048
  20. CIPROFLOXACIN. [Concomitant]
     Active Substance: CIPROFLOXACIN
     Dosage: PROPHYLAXIS INFECTION
     Route: 048
  21. ATEZOLIZUMAB. [Suspect]
     Active Substance: ATEZOLIZUMAB
     Indication: TRANSITIONAL CELL CARCINOMA
     Dosage: MOST RECENT DOSE: 13/MAY/2020
     Route: 042
     Dates: start: 20200120
  22. DEXAMETHASONE. [Concomitant]
     Active Substance: DEXAMETHASONE
     Dosage: PRPHYLAXIS THROMBCYTOPENIA
     Route: 048
     Dates: start: 20200115, end: 202001

REACTIONS (1)
  - Blood creatinine increased [Not Recovered/Not Resolved]

NARRATIVE: CASE EVENT DATE: 20200603
